FAERS Safety Report 17450078 (Version 2)
Quarter: 2020Q1

REPORT INFORMATION
  Report Type: Spontaneous
  Country: US (occurrence: US)
  Receive Date: 20200224
  Receipt Date: 20200312
  Transmission Date: 20200409
  Serious: Yes (Hospitalization, Other)
  Sender: FDA-Public Use
  Company Number: US-SA-2020SA046297

PATIENT
  Sex: Male

DRUGS (5)
  1. ADVAIR HFA [Concomitant]
     Active Substance: FLUTICASONE PROPIONATE\SALMETEROL XINAFOATE
     Dosage: 1 PUFF INTO LUNGS
  2. DUPIXENT [Suspect]
     Active Substance: DUPILUMAB
     Indication: NASAL POLYPS
     Dosage: UNK
     Dates: start: 202001
  3. DUPIXENT [Suspect]
     Active Substance: DUPILUMAB
     Indication: ASTHMA
  4. PROAIR HFA [Concomitant]
     Active Substance: ALBUTEROL SULFATE
     Indication: DYSPNOEA
     Dosage: 1-2 PUFFS INTO LUNGS
     Route: 055
  5. PULMICORT TURBUHALER [Concomitant]
     Active Substance: BUDESONIDE
     Indication: CHRONIC RHINOSINUSITIS WITH NASAL POLYPS
     Dosage: .5 MG
     Route: 045

REACTIONS (13)
  - Hypertension [Recovering/Resolving]
  - Cough [Unknown]
  - Left ventricular hypertrophy [Unknown]
  - Bronchiectasis [Unknown]
  - Leukocytosis [Unknown]
  - Chest pain [Unknown]
  - Asthma [Unknown]
  - Pain [Unknown]
  - Condition aggravated [Unknown]
  - Dyspnoea [Unknown]
  - Ischaemia [Unknown]
  - Aortic dilatation [Unknown]
  - Eosinophilic pneumonia [Unknown]

NARRATIVE: CASE EVENT DATE: 20200214
